FAERS Safety Report 7421882-5 (Version None)
Quarter: 2011Q2

REPORT INFORMATION
  Report Type: 
  Country: None (occurrence: None)
  Receive Date: 20110418
  Receipt Date: 20110414
  Transmission Date: 20111010
  Serious: Yes (Hospitalization)
  Sender: FDA-Public Use
  Company Number: PHHO2011CZ02613

PATIENT
  Sex: Female
  Weight: 85 kg

DRUGS (10)
  1. FTY 720 [Suspect]
     Dosage: 0.5 MG
     Route: 048
     Dates: start: 20091208
  2. PIRABENE [Concomitant]
     Indication: MULTIPLE SCLEROSIS
  3. VESICARE [Concomitant]
     Indication: URINARY INCONTINENCE
  4. MAGNE B6 [Concomitant]
  5. GERIAVIT [Concomitant]
  6. CIPRALEX [Concomitant]
     Indication: DEPRESSION
  7. PARALEN [Concomitant]
     Indication: VIRAL INFECTION
  8. OMEPRAZOLE [Concomitant]
     Indication: GASTRITIS PROPHYLAXIS
  9. FTY 720 [Suspect]
     Dosage: DOSE BLINDED
     Route: 048
     Dates: start: 20070711, end: 20091207
  10. BACLOFEN [Concomitant]
     Indication: MUSCULOSKELETAL PAIN

REACTIONS (2)
  - APHONIA [None]
  - TRACHEITIS [None]
